FAERS Safety Report 20899325 (Version 1)
Quarter: 2022Q2

REPORT INFORMATION
  Report Type: Spontaneous
  Country: US (occurrence: US)
  Receive Date: 20220601
  Receipt Date: 20220601
  Transmission Date: 20220720
  Serious: Yes (Hospitalization, Other)
  Sender: FDA-Public Use
  Company Number: US-AMGEN-USASP2022089963

PATIENT

DRUGS (7)
  1. FILGRASTIM [Suspect]
     Active Substance: FILGRASTIM
     Indication: Prophylaxis
     Route: 065
  2. EPOETIN ALFA [Suspect]
     Active Substance: ERYTHROPOIETIN
     Indication: Prophylaxis
     Route: 065
  3. CISPLATIN [Concomitant]
     Active Substance: CISPLATIN
  4. CARBOPLATIN [Concomitant]
     Active Substance: CARBOPLATIN
  5. ETOPOSIDE [Concomitant]
     Active Substance: ETOPOSIDE
  6. IRINOTECAN [Concomitant]
     Active Substance: IRINOTECAN
  7. TOPOTECAN [Concomitant]
     Active Substance: TOPOTECAN HYDROCHLORIDE

REACTIONS (4)
  - Anaemia [Unknown]
  - Neutropenia [Unknown]
  - Thrombocytopenia [Unknown]
  - Pancytopenia [Unknown]
